FAERS Safety Report 24351293 (Version 1)
Quarter: 2024Q3

REPORT INFORMATION
  Report Type: Report from Study
  Country: AT (occurrence: AT)
  Receive Date: 20240923
  Receipt Date: 20240923
  Transmission Date: 20241017
  Serious: No
  Sender: ROCHE
  Company Number: AT-CELLTRION HEALTHCARE HUNGARY KFT-2018AT025434

PATIENT
  Age: 78 Year
  Sex: Female
  Weight: 48.0 kg

DRUGS (44)
  1. HERCEPTIN [Suspect]
     Active Substance: TRASTUZUMAB
     Indication: HER2 positive breast cancer
     Dosage: 384 MILLIGRAM, EVERY 3 WEEKS
     Route: 065
     Dates: start: 20180810, end: 20180810
  2. HERCEPTIN [Suspect]
     Active Substance: TRASTUZUMAB
     Dosage: 288 MILLIGRAM, EVERY 3 WEEKS
     Route: 065
     Dates: start: 20180831
  3. TRASTUZUMAB [Suspect]
     Active Substance: TRASTUZUMAB
     Indication: HER2 positive breast cancer
     Dosage: 288 MG, EVERY 3 WEEKS
     Route: 042
     Dates: start: 20180831
  4. TRASTUZUMAB [Suspect]
     Active Substance: TRASTUZUMAB
     Dosage: 384 MG, EVERY 3 WEEKS
     Route: 042
     Dates: start: 20180810, end: 20180810
  5. PERTUZUMAB [Suspect]
     Active Substance: PERTUZUMAB
     Indication: HER2 positive breast cancer
     Dosage: 420 MG EVERY 3 WEEKS
     Route: 042
     Dates: start: 20180831
  6. PERTUZUMAB [Suspect]
     Active Substance: PERTUZUMAB
     Dosage: 840 MG, EVERY 3 WEEKS (DOSAGE TEXT: MOST RECENT DOSE PRIOR TO THE EVENT: 10/AUG/2018)
     Route: 042
     Dates: start: 20180810
  7. ADO-TRASTUZUMAB EMTANSINE [Suspect]
     Active Substance: ADO-TRASTUZUMAB EMTANSINE
     Indication: Breast cancer
     Dosage: 154 MG EVERY 3 WEEKS
     Route: 042
     Dates: start: 20190704, end: 20190704
  8. LETROZOLE [Suspect]
     Active Substance: LETROZOLE
     Indication: Breast cancer
     Dosage: 2.5 MG PER 1 DAY
     Route: 048
     Dates: start: 20181029, end: 20190613
  9. PACLITAXEL [Suspect]
     Active Substance: PACLITAXEL
     Indication: Breast cancer
     Dosage: 113.69 MG, 1/WEEK
     Route: 042
     Dates: start: 20180810, end: 20180914
  10. TAMOXIFEN [Suspect]
     Active Substance: TAMOXIFEN
     Indication: Breast cancer
     Dosage: 20 MG
     Route: 048
     Dates: start: 20190819, end: 20190827
  11. PACLITAXEL [Suspect]
     Active Substance: PACLITAXEL
     Indication: Breast cancer
     Dosage: 142.11 MG, EVERY 1 WEEK
     Route: 042
     Dates: start: 20180928, end: 20181005
  12. AVELOX [Concomitant]
     Active Substance: MOXIFLOXACIN HYDROCHLORIDE
     Indication: Osteonecrosis of jaw
     Dosage: UNK
     Dates: start: 20190802, end: 20190808
  13. AVELOX [Concomitant]
     Active Substance: MOXIFLOXACIN HYDROCHLORIDE
     Dosage: UNK
     Dates: start: 20190808, end: 20190827
  14. MESALAMINE [Concomitant]
     Active Substance: MESALAMINE
     Dosage: ONGOING = CHECKED
  15. RETINOL [Concomitant]
     Active Substance: RETINOL
     Dosage: UNK
     Dates: start: 20180831, end: 20190615
  16. NOVALGIN (AUSTRIA) [Concomitant]
     Dosage: UNK
     Dates: start: 20181126, end: 20191103
  17. VITAMINS WITH MINERALS [Concomitant]
     Active Substance: MINERALS\VITAMINS
     Dosage: UNK
     Dates: start: 20180817, end: 20190615
  18. ANTIFLAT [Concomitant]
     Dosage: UNK
     Dates: start: 20181126
  19. TEMESTA [Concomitant]
     Dosage: UNK
  20. ROZEX (METRONIDAZOLE) [Concomitant]
     Active Substance: METRONIDAZOLE
     Indication: Dermatitis
     Dosage: UNK
     Dates: start: 20180921, end: 20181005
  21. DONTISOLON [Concomitant]
     Indication: Osteonecrosis of jaw
     Dosage: UNK
     Dates: start: 20190820, end: 20190820
  22. CIPROFLOXACIN [Concomitant]
     Active Substance: CIPROFLOXACIN
     Indication: Gastroenteritis radiation
     Dosage: UNK
     Dates: start: 20181118
  23. DEXABENE [Concomitant]
     Dosage: UNK
     Dates: start: 20180810, end: 20180914
  24. ZOFRAN [Concomitant]
     Active Substance: ONDANSETRON HYDROCHLORIDE
     Indication: Nausea
     Dosage: UNK
     Dates: start: 20180817, end: 20180907
  25. ZOFRAN [Concomitant]
     Active Substance: ONDANSETRON HYDROCHLORIDE
     Dosage: UNK
     Dates: start: 20180907, end: 20180914
  26. MYCOSTATIN [Concomitant]
     Active Substance: NYSTATIN
     Indication: Mucosal inflammation
     Dosage: ONGOING = NOT CHECKED
     Dates: start: 20190819
  27. LOPERAMIDE HYDROCHLORIDE [Concomitant]
     Active Substance: LOPERAMIDE HYDROCHLORIDE
     Indication: Diarrhoea
     Dosage: ONGOING = NOT CHECKED
     Dates: start: 20181012, end: 20181116
  28. PASPERTIN [Concomitant]
     Indication: Nausea
     Dosage: UNK
     Dates: start: 20180831, end: 20180907
  29. PASPERTIN [Concomitant]
     Dosage: UNK
     Dates: start: 20180801, end: 20180807
  30. KYTRIL [Concomitant]
     Active Substance: GRANISETRON HYDROCHLORIDE
     Dosage: UNK
     Dates: start: 20180928, end: 20181019
  31. KYTRIL [Concomitant]
     Active Substance: GRANISETRON HYDROCHLORIDE
     Dosage: UNK
     Dates: start: 20180810, end: 20180914
  32. RANITIDINE HYDROCHLORIDE [Concomitant]
     Active Substance: RANITIDINE HYDROCHLORIDE
     Dosage: UNK
     Dates: start: 20180810, end: 20180914
  33. DIMETHINDENE MALEATE [Concomitant]
     Active Substance: DIMETHINDENE MALEATE
     Dosage: UNK
     Dates: start: 20180810, end: 20180914
  34. PANTOPRAZOLE SODIUM [Concomitant]
     Active Substance: PANTOPRAZOLE SODIUM
     Indication: Abdominal pain upper
     Dosage: ONGOING = NOT CHECKED
     Dates: start: 20181109, end: 20191101
  35. CALCIUM CHLORIDE\SODIUM CHLORIDE\SODIUM PHOSPHATE, DIBASIC, ANHYDROUS\ [Concomitant]
     Active Substance: CALCIUM CHLORIDE\SODIUM CHLORIDE\SODIUM PHOSPHATE, DIBASIC, ANHYDROUS\SODIUM PHOSPHATE, MONOBASIC, A
     Indication: Mucosal inflammation
     Dosage: ONGOING = NOT CHECKED
     Dates: start: 20180921
  36. XGEVA [Concomitant]
     Active Substance: DENOSUMAB
     Dosage: UNK
     Dates: start: 20180817, end: 20190225
  37. CHLORHEXIDINE [Concomitant]
     Active Substance: CHLORHEXIDINE
     Indication: Osteonecrosis of jaw
     Dosage: UNK
     Dates: start: 20190820, end: 20190820
  38. AMLODIPINE BESYLATE [Concomitant]
     Active Substance: AMLODIPINE BESYLATE
     Indication: Hypertension
     Dosage: UNK
     Dates: start: 20180810
  39. DEXIBUPROFEN [Concomitant]
     Active Substance: DEXIBUPROFEN
     Indication: Osteonecrosis of jaw
     Dosage: UNK
     Dates: start: 20190725
  40. MEFENAMIC ACID [Concomitant]
     Active Substance: MEFENAMIC ACID
     Indication: Arthralgia
     Dosage: ONGOING = NOT CHECKED
     Dates: start: 20180914, end: 20190615
  41. MEFENAMIC ACID [Concomitant]
     Active Substance: MEFENAMIC ACID
     Dosage: ONGOING = NOT CHECKED
     Dates: end: 20190615
  42. HYDROGEN [Concomitant]
     Active Substance: HYDROGEN
     Indication: Osteonecrosis of jaw
     Dosage: UNK
     Dates: start: 20190820, end: 20190820
  43. TRAZODONE HYDROCHLORIDE [Concomitant]
     Active Substance: TRAZODONE HYDROCHLORIDE
     Dosage: UNK
  44. POLYETHYLENE GLYCOL 3350\POTASSIUM CHLORIDE\SODIUM BICARBONATE\SODIUM [Concomitant]
     Active Substance: POLYETHYLENE GLYCOL 3350\POTASSIUM CHLORIDE\SODIUM BICARBONATE\SODIUM CHLORIDE
     Indication: Constipation
     Dosage: ONGOING = NOT CHECKED
     Dates: start: 20180831, end: 20180915

REACTIONS (7)
  - Dermatitis [Recovered/Resolved]
  - Arthralgia [Recovering/Resolving]
  - Mucosal inflammation [Recovered/Resolved]
  - Diarrhoea [Recovered/Resolved]
  - Constipation [Recovered/Resolved]
  - Epistaxis [Recovered/Resolved]
  - Conjunctivitis [Recovered/Resolved]

NARRATIVE: CASE EVENT DATE: 20180831
